FAERS Safety Report 10181773 (Version 1)
Quarter: 2014Q2

REPORT INFORMATION
  Report Type: Spontaneous
  Country: IT (occurrence: IT)
  Receive Date: 20140519
  Receipt Date: 20140519
  Transmission Date: 20141212
  Serious: Yes (Other)
  Sender: FDA-Public Use
  Company Number: IT-ACTAVIS-2014-10197

PATIENT
  Sex: Male

DRUGS (8)
  1. IRINOTECAN (UNKNOWN) [Suspect]
     Indication: PRODUCT USED FOR UNKNOWN INDICATION
     Dosage: 160 MG / SQM
     Route: 017
     Dates: start: 20110728, end: 20111103
  2. IRINOTECAN (UNKNOWN) [Suspect]
     Dosage: 140MG/SQM
  3. OXALIPLATIN (UNKNOWN) [Suspect]
     Indication: PRODUCT USED FOR UNKNOWN INDICATION
     Dosage: 80MG/SQM UNK
     Route: 017
     Dates: start: 20110728, end: 20111103
  4. OXALIPLATIN (UNKNOWN) [Suspect]
     Dosage: 80MG/SQM UNK
     Dates: start: 20111214
  5. BEVACIZUMAB [Suspect]
     Indication: PRODUCT USED FOR UNKNOWN INDICATION
     Dosage: 5MG/KG UNK
     Route: 017
     Dates: start: 20110728, end: 20111103
  6. FLUOROURACIL 5 FU [Suspect]
     Indication: PRODUCT USED FOR UNKNOWN INDICATION
     Dosage: 900MG/M2/DAY
     Route: 017
     Dates: start: 20110728, end: 20111103
  7. FLUOROURACIL 5 FU [Suspect]
     Dosage: 800MG/SQM/DAYUNK
  8. FLUOROURACIL 5 FU [Suspect]
     Dosage: 750MG/M/DAY
     Dates: start: 20111214

REACTIONS (2)
  - Diarrhoea [Unknown]
  - Anal inflammation [Unknown]
